FAERS Safety Report 5819944-9 (Version None)
Quarter: 2008Q3

REPORT INFORMATION
  Report Type: 
  Country: None (occurrence: None)
  Receive Date: 20080717
  Receipt Date: 20080708
  Transmission Date: 20090109
  Serious: Yes (Death, Other)
  Sender: FDA-Public Use
  Company Number: 2008AP001677

PATIENT
  Age: 29 Year
  Sex: Male

DRUGS (1)
  1. ALLOPURINOL [Suspect]
     Indication: GOUT

REACTIONS (17)
  - ABDOMINAL PAIN [None]
  - ABSCESS INTESTINAL [None]
  - ALANINE AMINOTRANSFERASE INCREASED [None]
  - ASPARTATE AMINOTRANSFERASE INCREASED [None]
  - BLOOD BILIRUBIN INCREASED [None]
  - BLOOD POTASSIUM INCREASED [None]
  - BLOOD SODIUM DECREASED [None]
  - DIARRHOEA [None]
  - DRUG RASH WITH EOSINOPHILIA AND SYSTEMIC SYMPTOMS [None]
  - GASTROINTESTINAL NECROSIS [None]
  - HEPATIC NECROSIS [None]
  - HYPERSENSITIVITY [None]
  - LIVER ABSCESS [None]
  - LYMPH NODE PAIN [None]
  - PALPITATIONS [None]
  - PHARYNGITIS [None]
  - STOMATITIS [None]
